FAERS Safety Report 13129722 (Version 2)
Quarter: 2017Q1

REPORT INFORMATION
  Report Type: Spontaneous
  Country: US (occurrence: US)
  Receive Date: 20170119
  Receipt Date: 20170215
  Transmission Date: 20170428
  Serious: No
  Sender: FDA-Public Use
  Company Number: US-PFIZER INC-2016512191

PATIENT
  Age: 30 Year
  Sex: Female
  Weight: 45 kg

DRUGS (5)
  1. XELJANZ XR [Suspect]
     Active Substance: TOFACITINIB CITRATE
     Indication: RHEUMATOID ARTHRITIS
     Dosage: 1 DF, DAILY (ONE TABLET + ER 24 HR DAILY)
     Route: 048
     Dates: start: 20161026
  2. XELJANZ XR [Suspect]
     Active Substance: TOFACITINIB CITRATE
     Indication: SERONEGATIVE ARTHRITIS
  3. PREDNISONE. [Concomitant]
     Active Substance: PREDNISONE
     Indication: RHEUMATOID ARTHRITIS
     Dosage: UNK  (IN AM TAKES 5MG TABLET, AT NIGHT TAKES 4MG)
  4. XELJANZ XR [Suspect]
     Active Substance: TOFACITINIB CITRATE
     Indication: POLYARTHRITIS
     Dosage: 11 MG, 1X/DAY (ONE TABLET + ER 24 HR DAILY)
     Dates: start: 20161026
  5. IRON [Concomitant]
     Active Substance: IRON
     Indication: ANAEMIA
     Dosage: 1 DF, 1X/DAY

REACTIONS (2)
  - Eye swelling [Recovering/Resolving]
  - Swelling face [Recovering/Resolving]

NARRATIVE: CASE EVENT DATE: 20170115
